FAERS Safety Report 22252016 (Version 1)
Quarter: 2023Q2

REPORT INFORMATION
  Report Type: Report from Study
  Country: JP (occurrence: JP)
  Receive Date: 20230425
  Receipt Date: 20230425
  Transmission Date: 20230721
  Serious: Yes (Hospitalization, Other)
  Sender: FDA-Public Use
  Company Number: JP-ABBVIE-4740435

PATIENT
  Age: 37 Year
  Sex: Male

DRUGS (10)
  1. NORVIR [Suspect]
     Active Substance: RITONAVIR
     Indication: HIV infection
     Dosage: FREQUENCY TEXT: EVERY DAY?DURATION TEXT: 2 YEARS 10 MONTHS 16 DAYS?FORM STRENGTH 100 MG
     Route: 048
     Dates: start: 20050330, end: 20080215
  2. NORVIR [Suspect]
     Active Substance: RITONAVIR
     Indication: HIV infection
     Dosage: FORM STRENGTH 200 MG
     Route: 048
     Dates: start: 20080216
  3. RABEPRAZOLE SODIUM [Concomitant]
     Active Substance: RABEPRAZOLE SODIUM
     Indication: Product used for unknown indication
     Dates: start: 20050716, end: 20051210
  4. PEGINTERFERON ALFA-2B [Suspect]
     Active Substance: PEGINTERFERON ALFA-2B
     Indication: Hepatitis C
     Dosage: FORM STRENGTH: 0.4 MILLIGRAM?FREQUENCY TEXT: Q1WK
     Route: 058
     Dates: start: 20051014, end: 20070313
  5. VIREAD [Suspect]
     Active Substance: TENOFOVIR DISOPROXIL FUMARATE
     Indication: HIV infection
     Dosage: FORM STRENGTH: 300 MILLIGRAM?DURATION TEXT: 2 YEARS 10 MONTHS 16 DAYS
     Route: 048
     Dates: start: 20050330, end: 20080215
  6. REBETOL [Concomitant]
     Active Substance: RIBAVIRIN
     Indication: Product used for unknown indication
     Dates: start: 20051210, end: 20070320
  7. REYATAZ [Suspect]
     Active Substance: ATAZANAVIR SULFATE
     Indication: HIV infection
     Dosage: FORM STRENGTH: 300 MILLIGRAM?DURATION TEXT: 2 YEARS 10 MONTHS 16 DAYS
     Route: 048
     Dates: start: 20050330, end: 20080215
  8. RECOMBINATE [Concomitant]
     Active Substance: ANTIHEMOPHILIC FACTOR, HUMAN RECOMBINANT
     Indication: Product used for unknown indication
     Dates: start: 20050330, end: 20070720
  9. EPIVIR [Suspect]
     Active Substance: LAMIVUDINE
     Indication: HIV infection
     Dosage: FORM STRENGTH 300 MG?DURATION  2 YEARS 10 MONTHS 16 DAYS
     Route: 048
     Dates: start: 20050330, end: 20080215
  10. LAFUTIDINE [Concomitant]
     Active Substance: LAFUTIDINE
     Indication: Product used for unknown indication
     Dates: start: 20051210, end: 20080215

REACTIONS (8)
  - Melaena [Not Recovered/Not Resolved]
  - Platelet count decreased [Not Recovered/Not Resolved]
  - Faeces discoloured [Not Recovered/Not Resolved]
  - Lipoatrophy [Not Recovered/Not Resolved]
  - Blood bilirubin increased [Recovered/Resolved]
  - Hepatitis C [Not Recovered/Not Resolved]
  - White blood cell count decreased [Not Recovered/Not Resolved]
  - Varices oesophageal [Not Recovered/Not Resolved]

NARRATIVE: CASE EVENT DATE: 20050330
